FAERS Safety Report 6276302-3 (Version None)
Quarter: 2009Q3

REPORT INFORMATION
  Report Type: 
  Country: None (occurrence: None)
  Receive Date: 20090722
  Receipt Date: 20090715
  Transmission Date: 20100115
  Serious: Yes (Other)
  Sender: FDA-Public Use
  Company Number: US-ROCHE-639236

PATIENT
  Sex: Female
  Weight: 43.5 kg

DRUGS (1)
  1. CAPECITABINE [Suspect]
     Indication: BREAST CANCER
     Dosage: STRENGTH: 500 MG AND 100 MG
     Route: 048
     Dates: start: 20090403, end: 20090617

REACTIONS (3)
  - BREAST CANCER [None]
  - DISEASE PROGRESSION [None]
  - MALIGNANT NEOPLASM PROGRESSION [None]
